FAERS Safety Report 8482833 (Version 7)
Quarter: 2014Q1

REPORT INFORMATION
  Report Type: Spontaneous
  Country: US (occurrence: US)
  Receive Date: 20120329
  Receipt Date: 20140210
  Transmission Date: 20141002
  Serious: Yes (Hospitalization, Disabling, Other)
  Sender: FDA-Public Use
  Company Number: US-009507513-1203USA03326

PATIENT
  Sex: Female
  Weight: 71.67 kg

DRUGS (5)
  1. FOSAMAX [Suspect]
     Indication: OSTEOPENIA
     Dosage: 70 MG, QW
     Route: 048
     Dates: start: 20011214, end: 200711
  2. FOSAMAX [Suspect]
     Indication: OSTEOPOROSIS
  3. FOSAMAX [Suspect]
     Indication: OSTEOPENIA
     Dosage: 70 MG, QW
     Route: 048
     Dates: start: 200710, end: 201005
  4. FOSAMAX [Suspect]
     Indication: OSTEOPOROSIS
  5. LEVOTIROXINA S.O [Concomitant]
     Indication: THYROID DISORDER
     Dosage: 1947 TO PRESENT
     Route: 048

REACTIONS (81)
  - Femur fracture [Not Recovered/Not Resolved]
  - Intramedullary rod insertion [Unknown]
  - Osteoporosis [Unknown]
  - Stress fracture [Unknown]
  - Femur fracture [Unknown]
  - Urinary retention [Not Recovered/Not Resolved]
  - Knee arthroplasty [Unknown]
  - Urinary tract infection [Unknown]
  - Fall [Unknown]
  - Osteoarthritis [Unknown]
  - Arthropathy [Unknown]
  - Low turnover osteopathy [Unknown]
  - Anaemia [Unknown]
  - Anaemia [Unknown]
  - Back pain [Unknown]
  - Pain [Unknown]
  - Fall [Unknown]
  - Osteoarthritis [Unknown]
  - Anaemia [Unknown]
  - Hypertension [Not Recovered/Not Resolved]
  - Hormone level abnormal [Unknown]
  - Tooth disorder [Unknown]
  - Hypercholesterolaemia [Not Recovered/Not Resolved]
  - Sleep disorder [Not Recovered/Not Resolved]
  - Arthropathy [Not Recovered/Not Resolved]
  - Bone disorder [Unknown]
  - Back disorder [Unknown]
  - Cystocele [Unknown]
  - Fall [Unknown]
  - Syncope [Unknown]
  - Head injury [Unknown]
  - Contusion [Unknown]
  - Heart valve incompetence [Unknown]
  - Mitral valve calcification [Unknown]
  - Aortic valve sclerosis [Unknown]
  - Antinuclear antibody positive [Unknown]
  - Nodal osteoarthritis [Unknown]
  - Road traffic accident [Unknown]
  - Ligament sprain [Unknown]
  - Acute stress disorder [Unknown]
  - Panic attack [Unknown]
  - Synovial cyst [Unknown]
  - Spinal osteoarthritis [Unknown]
  - Spinal column stenosis [Unknown]
  - Adverse event [Unknown]
  - Cardiovascular disorder [Unknown]
  - Dyspnoea [Unknown]
  - Haemorrhoids [Unknown]
  - Oestrogen deficiency [Unknown]
  - Culture urine positive [Unknown]
  - Fibrocystic breast disease [Unknown]
  - Hypertonic bladder [Unknown]
  - Nasal septum deviation [Unknown]
  - Nasal congestion [Unknown]
  - Foot fracture [Unknown]
  - Jaw disorder [Unknown]
  - Tooth loss [Unknown]
  - Urinary incontinence [Unknown]
  - Lumbar spinal stenosis [Unknown]
  - Lumbar radiculopathy [Unknown]
  - Vertebral foraminal stenosis [Unknown]
  - Appendix disorder [Unknown]
  - Nervousness [Unknown]
  - Anxiety [Unknown]
  - Excoriation [Unknown]
  - Gait disturbance [Unknown]
  - Impaired fasting glucose [Unknown]
  - Cyst [Unknown]
  - Tooth disorder [Unknown]
  - Tooth disorder [Unknown]
  - Actinic keratosis [Unknown]
  - Arthropathy [Unknown]
  - Dyspnoea [Recovered/Resolved]
  - Pyrexia [Unknown]
  - Headache [Unknown]
  - Constipation [Not Recovered/Not Resolved]
  - Arthralgia [Unknown]
  - Oedema peripheral [Unknown]
  - Oedema peripheral [Unknown]
  - Pain in extremity [Unknown]
  - Pain in extremity [Unknown]
